FAERS Safety Report 10640994 (Version 3)
Quarter: 2015Q3

REPORT INFORMATION
  Report Type: Spontaneous
  Country: US (occurrence: US)
  Receive Date: 20141209
  Receipt Date: 20150714
  Transmission Date: 20151125
  Serious: No
  Sender: FDA-Public Use
  Company Number: US-PFIZER INC-2014332737

PATIENT
  Age: 49 Year
  Sex: Male

DRUGS (16)
  1. AMITRIPTYLINE HCL [Concomitant]
     Active Substance: AMITRIPTYLINE
     Dosage: 25 MG, 1X/DAY (1 TABLET AT BEDTIME ONCE A DAY)
  2. TESTOSTERONE. [Concomitant]
     Active Substance: TESTOSTERONE
     Dosage: 1 DF, 1X/DAY (4MG/24 HR PATCH 24 HOUR 1 PATCH TO SKIN AT BEDTIME ONCE A DAY)
     Route: 062
  3. NITROGLYCERIN. [Concomitant]
     Active Substance: NITROGLYCERIN
     Dosage: 0.3 MG, UNK
     Route: 060
  4. METHADONE HYDROCHLORIDE. [Concomitant]
     Active Substance: METHADONE HYDROCHLORIDE
     Indication: INTERVERTEBRAL DISC DEGENERATION
     Dosage: 10 MG, 4X/DAY, (1 TABLET EVERY 6 HOURS)
     Route: 048
  5. ALBUTEROL SULFATE. [Concomitant]
     Active Substance: ALBUTEROL SULFATE
     Dosage: 3 ML, 3X/DAY (2.5 MG/3ML) 0.083% NEBULIZATION SOLUTION 3 MI THREE TIMES A DAY)
  6. HYDROXYZINE PAMOATE. [Concomitant]
     Active Substance: HYDROXYZINE PAMOATE
     Indication: INSOMNIA
  7. VYTORIN [Concomitant]
     Active Substance: EZETIMIBE\SIMVASTATIN
     Dosage: 1 DF, 1X/DAY (10-40 MG TABLET 1 TABLET ONCE A DAY)
  8. HYDROXYZINE HCL [Concomitant]
     Active Substance: HYDROXYZINE HYDROCHLORIDE
     Indication: INSOMNIA
     Dosage: 50 MG, 4X/DAY (1 TABLET AS NEEDED FOUR TIMES A DAY)
  9. ALPRAZOLAM. [Concomitant]
     Active Substance: ALPRAZOLAM
     Indication: INSOMNIA
     Dosage: 2 MG, 3X/DAY
     Route: 048
  10. METFORMIN HCL [Concomitant]
     Active Substance: METFORMIN HYDROCHLORIDE
     Dosage: 1000 MG, 2X/DAY
     Route: 048
  11. ORGAN-I NR [Concomitant]
     Active Substance: GUAIFENESIN
     Dosage: 200 MG, AS NEEDED EVERY 4 HRS
  12. LYRICA [Suspect]
     Active Substance: PREGABALIN
     Indication: DIABETES MELLITUS
     Dosage: 300 MG, 2X/DAY
     Route: 048
  13. NORTRIPTYLINE HCL [Concomitant]
     Active Substance: NORTRIPTYLINE HYDROCHLORIDE
     Dosage: 25 MG, 1X/DAY
  14. HYDROXYZINE PAMOATE. [Concomitant]
     Active Substance: HYDROXYZINE PAMOATE
     Indication: ANXIETY
     Dosage: 50 MG, 4X/DAY (ONE CAPSULE EVERY 6 HOURS AS NEEDED)
     Route: 048
  15. CHOLESTYRAMINE. [Concomitant]
     Active Substance: CHOLESTYRAMINE
     Dosage: 4 GM/DOSE POWDER 1 TWICE A DAY
  16. NYSTATIN. [Concomitant]
     Active Substance: NYSTATIN
     Dosage: 500000 IU, 4X/DAY (500000 UNIT SUSPENSION QID)

REACTIONS (7)
  - Myalgia [Unknown]
  - Product use issue [Unknown]
  - Muscle spasms [Unknown]
  - Body mass index increased [Unknown]
  - Arthralgia [Unknown]
  - Joint swelling [Unknown]
  - Fungal skin infection [Unknown]
